FAERS Safety Report 7428947-2 (Version None)
Quarter: 2011Q2

REPORT INFORMATION
  Report Type: 
  Country: None (occurrence: None)
  Receive Date: 20110412
  Receipt Date: 20110325
  Transmission Date: 20111010
  Serious: Yes (Death)
  Sender: FDA-Public Use
  Company Number: 015064

PATIENT
  Age: 63 Year
  Sex: Male

DRUGS (1)
  1. MACUGEN [Suspect]
     Indication: DIABETIC RETINOPATHY
     Dosage: 0.3 MG, INTRAOCULAR
     Route: 031
     Dates: start: 20091209

REACTIONS (1)
  - DEATH [None]
